FAERS Safety Report 4502386-6 (Version None)
Quarter: 2004Q4

REPORT INFORMATION
  Report Type: 
  Country: None (occurrence: None)
  Receive Date: 20041110
  Receipt Date: 20041026
  Transmission Date: 20050328
  Serious: Yes (Disabling)
  Sender: FDA-Public Use
  Company Number: S04-NOR-07415-01

PATIENT
  Age: 68 Year
  Sex: Female

DRUGS (5)
  1. CIPRALEX (ESCITALOPRAM) [Suspect]
     Indication: DEPRESSION
     Dosage: 10 MG QD PO
     Route: 048
     Dates: start: 20040805, end: 20040817
  2. ACETAMINOPHEN [Concomitant]
  3. THYROXIN-NATRIUM (LEVOTHYROXINE SODIUM) [Concomitant]
  4. COZAAR [Concomitant]
  5. IBUX (IBUPROFEN) [Concomitant]

REACTIONS (7)
  - DYSARTHRIA [None]
  - DYSPHONIA [None]
  - FACIAL PARESIS [None]
  - LETHARGY [None]
  - LISTLESS [None]
  - RASH ERYTHEMATOUS [None]
  - RASH PRURITIC [None]
